FAERS Safety Report 7065173-3 (Version None)
Quarter: 2010Q4

REPORT INFORMATION
  Report Type: 
  Country: None (occurrence: None)
  Receive Date: 20101022
  Receipt Date: 20101022
  Transmission Date: 20110411
  Serious: No
  Sender: FDA-Public Use
  Company Number: None

PATIENT
  Sex: Female
  Weight: 71.6683 kg

DRUGS (1)
  1. FLUTICASONE PROPIONATE [Suspect]
     Indication: SINUSITIS
     Dosage: 1 SPRAY PER NOSTRIL TWICE DAILY
     Dates: start: 20101004

REACTIONS (4)
  - BEDRIDDEN [None]
  - DIZZINESS [None]
  - NAUSEA [None]
  - VERTIGO [None]
